FAERS Safety Report 5286211-4 (Version None)
Quarter: 2007Q1

REPORT INFORMATION
  Report Type: 
  Country: None (occurrence: None)
  Receive Date: 20070329
  Receipt Date: 20070321
  Transmission Date: 20070707
  Serious: Yes (Hospitalization)
  Sender: FDA-Public Use
  Company Number: 2006BI016391

PATIENT
  Age: 59 Year
  Sex: Female

DRUGS (11)
  1. NATALIZUMAB [Suspect]
     Indication: MULTIPLE SCLEROSIS
     Dosage: 300 MG;QM;IV
     Route: 042
     Dates: start: 20061025
  2. TYLENOL [Concomitant]
  3. NSAIDS [Concomitant]
  4. VITAMIN [Concomitant]
  5. BETASERON [Concomitant]
  6. FOSAMAX [Concomitant]
  7. BACLOFEN [Concomitant]
  8. OXYBUTYNIN CHLORIDE [Concomitant]
  9. ESTRACE [Concomitant]
  10. GLUCOSAMINE [Concomitant]
  11. SENOKOT [Concomitant]

REACTIONS (12)
  - ALANINE AMINOTRANSFERASE INCREASED [None]
  - ASPARTATE AMINOTRANSFERASE INCREASED [None]
  - BLOOD ALKALINE PHOSPHATASE INCREASED [None]
  - BLOOD BILIRUBIN INCREASED [None]
  - BONE MARROW DISORDER [None]
  - JAUNDICE [None]
  - LIP DRY [None]
  - MULTIPLE SCLEROSIS [None]
  - PITTING OEDEMA [None]
  - PNEUMONIA [None]
  - SPINAL OSTEOARTHRITIS [None]
  - TONGUE DRY [None]
